FAERS Safety Report 10375848 (Version 1)
Quarter: 2014Q3

REPORT INFORMATION
  Report Type: Spontaneous
  Country: GB (occurrence: GB)
  Receive Date: 20140811
  Receipt Date: 20140811
  Transmission Date: 20150326
  Serious: Yes (Other)
  Sender: FDA-Public Use
  Company Number: GB-TEVA-499008ISR

PATIENT
  Age: 19 Year
  Sex: Female

DRUGS (5)
  1. METRONIDAZOLE. [Suspect]
     Active Substance: METRONIDAZOLE
     Indication: PELVIC INFLAMMATORY DISEASE
     Route: 048
     Dates: start: 20140624, end: 20140701
  2. AZITHROMYCIN [Concomitant]
     Active Substance: AZITHROMYCIN ANHYDROUS
     Indication: CHLAMYDIAL INFECTION
     Route: 048
     Dates: start: 20140603, end: 20140603
  3. CEFTRIAXONE. [Concomitant]
     Active Substance: CEFTRIAXONE
     Indication: PELVIC INFLAMMATORY DISEASE
     Route: 030
     Dates: start: 20140624, end: 20140624
  4. LIDOCAINE. [Concomitant]
     Active Substance: LIDOCAINE
     Dosage: GIVEN WITH CEFTRIAXONE
     Route: 030
     Dates: start: 20140624, end: 20140624
  5. DOXYCYCLINE. [Suspect]
     Active Substance: DOXYCYCLINE
     Indication: PELVIC INFLAMMATORY DISEASE
     Route: 048
     Dates: start: 20140624, end: 20140701

REACTIONS (5)
  - Rash [Recovering/Resolving]
  - Tachycardia [Recovering/Resolving]
  - Dizziness [Recovering/Resolving]
  - Nausea [Recovering/Resolving]
  - Hot flush [Recovering/Resolving]

NARRATIVE: CASE EVENT DATE: 20140627
